FAERS Safety Report 4955368-4 (Version None)
Quarter: 2006Q1

REPORT INFORMATION
  Report Type: 
  Country: None (occurrence: None)
  Receive Date: 20060322
  Receipt Date: 20060308
  Transmission Date: 20060701
  Serious: Yes (Hospitalization)
  Sender: FDA-Public Use
  Company Number: 2005-130813-NL

PATIENT
  Sex: Female

DRUGS (4)
  1. GANIRELIX ACETATE INJECTION [Suspect]
     Dosage: 1 DF ONCE
  2. LOVENOX [Concomitant]
  3. PROGESTIN INJ [Concomitant]
  4. ASPIRINIA INFANTIL [Concomitant]

REACTIONS (3)
  - AMNIORRHEXIS [None]
  - DRUG EXPOSURE DURING PREGNANCY [None]
  - WRONG DRUG ADMINISTERED [None]
